FAERS Safety Report 9550055 (Version 1)
Quarter: 2013Q3

REPORT INFORMATION
  Report Type: Spontaneous
  Country: US (occurrence: US)
  Receive Date: 20130924
  Receipt Date: 20130924
  Transmission Date: 20140515
  Serious: No
  Sender: FDA-Public Use
  Company Number: US-009507513-1302USA010869

PATIENT
  Sex: 0

DRUGS (1)
  1. MK-8415 [Suspect]
     Dosage: UNK
     Dates: start: 201203

REACTIONS (3)
  - Neuralgia [Unknown]
  - Product quality issue [Unknown]
  - Medical device complication [Unknown]
